FAERS Safety Report 16756047 (Version 1)
Quarter: 2019Q3

REPORT INFORMATION
  Report Type: Spontaneous
  Country: US (occurrence: US)
  Receive Date: 20190829
  Receipt Date: 20190829
  Transmission Date: 20191005
  Serious: Yes (Other)
  Sender: FDA-Public Use
  Company Number: US-ASTELLAS-2019US034286

PATIENT
  Age: 7 Decade
  Sex: Female

DRUGS (4)
  1. LEXISCAN [Suspect]
     Active Substance: REGADENOSON
     Indication: PRODUCT USED FOR UNKNOWN INDICATION
     Dosage: ONE DOSE OF LEXISCAN 5 ML (0.4 MG REGADENOSON)
     Route: 042
     Dates: start: 20190823, end: 20190823
  2. LEXISCAN [Suspect]
     Active Substance: REGADENOSON
     Indication: PRODUCT USED FOR UNKNOWN INDICATION
     Dosage: ONE DOSE OF LEXISCAN 5 ML (0.4 MG REGADENOSON)
     Route: 042
     Dates: start: 20190823, end: 20190823
  3. LEXISCAN [Suspect]
     Active Substance: REGADENOSON
     Indication: PRODUCT USED FOR UNKNOWN INDICATION
     Dosage: ONE DOSE OF LEXISCAN 5 ML (0.4 MG REGADENOSON)
     Route: 042
     Dates: start: 20190823, end: 20190823
  4. LEXISCAN [Suspect]
     Active Substance: REGADENOSON
     Indication: PRODUCT USED FOR UNKNOWN INDICATION
     Dosage: ONE DOSE OF LEXISCAN 5 ML (0.4 MG REGADENOSON)
     Route: 042
     Dates: start: 20190823, end: 20190823

REACTIONS (4)
  - Muscle twitching [Recovering/Resolving]
  - Malaise [Recovering/Resolving]
  - Dysphagia [Recovering/Resolving]
  - Blepharospasm [Recovering/Resolving]

NARRATIVE: CASE EVENT DATE: 20190823
